FAERS Safety Report 14101691 (Version 1)
Quarter: 2017Q4

REPORT INFORMATION
  Report Type: Spontaneous
  Country: US (occurrence: US)
  Receive Date: 20171018
  Receipt Date: 20171018
  Transmission Date: 20180321
  Serious: Yes (Other)
  Sender: FDA-Public Use
  Company Number: US-AMGEN-USASP2017156062

PATIENT
  Age: 52 Year
  Sex: Female

DRUGS (20)
  1. POTASSIUM [Concomitant]
     Active Substance: POTASSIUM
     Dosage: 75 MG, UNK
  2. CYCLOBENZAPRINE. [Concomitant]
     Active Substance: CYCLOBENZAPRINE
     Dosage: 10 MG, UNK
  3. PHENTERMINE HCL [Concomitant]
     Active Substance: PHENTERMINE HYDROCHLORIDE
     Dosage: UNK
  4. CELEBREX [Concomitant]
     Active Substance: CELECOXIB
     Dosage: UNK
  5. PROBIOTIC [Concomitant]
     Active Substance: PROBIOTICS NOS
     Dosage: UNK
  6. ENBREL [Suspect]
     Active Substance: ETANERCEPT
     Indication: RHEUMATOID ARTHRITIS
     Dosage: 50 MG, QWK
     Route: 058
     Dates: start: 201406
  7. DICLOFENAC POTASSIUM. [Concomitant]
     Active Substance: DICLOFENAC POTASSIUM
     Dosage: 50 MG, UNK
  8. CYMBALTA [Concomitant]
     Active Substance: DULOXETINE HYDROCHLORIDE
     Dosage: 30 MG, UNK
  9. METRONIDAZOLE. [Concomitant]
     Active Substance: METRONIDAZOLE
     Dosage: 250 MG, UNK
  10. GABAPENTIN. [Concomitant]
     Active Substance: GABAPENTIN
     Dosage: 100 MG, UNK
  11. RANITIDINE. [Concomitant]
     Active Substance: RANITIDINE
     Dosage: 150 MG, UNK
  12. FOLIC ACID. [Concomitant]
     Active Substance: FOLIC ACID
     Dosage: 20 MG, UNK
  13. CALCIUM [Concomitant]
     Active Substance: CALCIUM
     Dosage: 600 MG, UNK
  14. HYDROCHLOROTHIAZIDE AND LISINOPRIL [Concomitant]
     Active Substance: HYDROCHLOROTHIAZIDE\LISINOPRIL
     Dosage: UNK
  15. PRAVASTATIN. [Concomitant]
     Active Substance: PRAVASTATIN
     Dosage: 10 MG, UNK
  16. AMOXICILLIN. [Concomitant]
     Active Substance: AMOXICILLIN
     Dosage: UNK
  17. ASPIRIN. [Concomitant]
     Active Substance: ASPIRIN
     Dosage: 81 MG, UNK
  18. TRAMADOL HCL [Concomitant]
     Active Substance: TRAMADOL HYDROCHLORIDE
     Dosage: 50 MG, UNK
  19. VITAMIN B12 [Concomitant]
     Active Substance: CYANOCOBALAMIN
     Dosage: 1000 MUG, UNK
  20. VENTOLIN HFA [Concomitant]
     Active Substance: ALBUTEROL SULFATE
     Dosage: UNK

REACTIONS (1)
  - Rheumatoid arthritis [Unknown]
